FAERS Safety Report 14939003 (Version 2)
Quarter: 2018Q2

REPORT INFORMATION
  Report Type: Spontaneous
  Country: TH (occurrence: TH)
  Receive Date: 20180525
  Receipt Date: 20180619
  Transmission Date: 20180711
  Serious: Yes (Hospitalization)
  Sender: FDA-Public Use
  Company Number: TH-SAOL THERAPEUTICS-2018SAO00788

PATIENT
  Age: 56 Year
  Sex: Male

DRUGS (2)
  1. LIORESAL [Suspect]
     Active Substance: BACLOFEN
     Dosage: 419.9 ?G, \DAY
     Route: 037
  2. LIORESAL [Suspect]
     Active Substance: BACLOFEN
     Dosage: 12.5 ?G, \DAY, MIN RATE
     Route: 037

REACTIONS (2)
  - Loss of consciousness [Not Recovered/Not Resolved]
  - Respiratory arrest [Not Recovered/Not Resolved]

NARRATIVE: CASE EVENT DATE: 20180516
